FAERS Safety Report 7219136-5 (Version None)
Quarter: 2011Q1

REPORT INFORMATION
  Report Type: 
  Country: None (occurrence: None)
  Receive Date: 20110111
  Receipt Date: 20101230
  Transmission Date: 20110831
  Serious: Yes (Other)
  Sender: FDA-Public Use
  Company Number: US-ELI_LILLY_AND_COMPANY-US201008006262

PATIENT
  Sex: Female

DRUGS (2)
  1. BOTOX PURIFIED NEUROTOXIN COMPLEX [Concomitant]
     Indication: SKIN WRINKLING
     Dates: start: 20101101
  2. FORTEO [Suspect]
     Indication: OSTEOPOROSIS
     Dosage: 20 UG, DAILY (1/D)
     Route: 065
     Dates: start: 20090701

REACTIONS (10)
  - POOR QUALITY SLEEP [None]
  - FACE INJURY [None]
  - PAIN IN EXTREMITY [None]
  - NERVE INJURY [None]
  - ABDOMINAL DISCOMFORT [None]
  - COUGH [None]
  - SKIN CANCER [None]
  - BRONCHITIS [None]
  - INJECTION SITE HAEMATOMA [None]
  - SNEEZING [None]
